FAERS Safety Report 12880198 (Version 1)
Quarter: 2016Q4

REPORT INFORMATION
  Report Type: Report from Study
  Country: GR (occurrence: GR)
  Receive Date: 20161025
  Receipt Date: 20161025
  Transmission Date: 20170207
  Serious: Yes (Other)
  Sender: FDA-Public Use
  Company Number: GR-ROCHE-1845554

PATIENT
  Sex: Female
  Weight: 180 kg

DRUGS (1)
  1. ESBRIET [Suspect]
     Active Substance: PIRFENIDONE
     Indication: IDIOPATHIC PULMONARY FIBROSIS
     Dosage: 3X3, DAILY
     Route: 048

REACTIONS (2)
  - Decreased appetite [Recovering/Resolving]
  - Diabetes mellitus inadequate control [Recovering/Resolving]
